FAERS Safety Report 7980181-3 (Version None)
Quarter: 2011Q4

REPORT INFORMATION
  Report Type: 
  Country: None (occurrence: None)
  Receive Date: 20111214
  Receipt Date: 20111202
  Transmission Date: 20120403
  Serious: Yes (Hospitalization)
  Sender: FDA-Public Use
  Company Number: JP-ACTELION-A-CH2011-58006

PATIENT
  Sex: Male
  Weight: 60 kg

DRUGS (4)
  1. TRACLEER [Suspect]
     Indication: PULMONARY ARTERIAL HYPERTENSION
     Dosage: 125 MG, BID
     Route: 048
     Dates: start: 20061128
  2. TRACLEER [Suspect]
     Dosage: 31.25 MG, BID
     Route: 048
     Dates: start: 20061115, end: 20061120
  3. TRACLEER [Suspect]
     Dosage: 62.5 MG, BID
     Route: 048
     Dates: start: 20061121, end: 20061127
  4. OXYGEN [Concomitant]

REACTIONS (9)
  - RIGHT VENTRICULAR FAILURE [None]
  - BLOOD BILIRUBIN INCREASED [None]
  - UPPER RESPIRATORY TRACT INFLAMMATION [None]
  - BRONCHITIS [None]
  - HEPATIC FUNCTION ABNORMAL [None]
  - HAEMOPTYSIS [None]
  - CONCOMITANT DISEASE AGGRAVATED [None]
  - ASPARTATE AMINOTRANSFERASE INCREASED [None]
  - ALANINE AMINOTRANSFERASE INCREASED [None]
